FAERS Safety Report 11589860 (Version 3)
Quarter: 2015Q4

REPORT INFORMATION
  Report Type: Spontaneous
  Country: US (occurrence: US)
  Receive Date: 20151002
  Receipt Date: 20151111
  Transmission Date: 20160304
  Serious: Yes (Other)
  Sender: FDA-Public Use
  Company Number: US-SMITH AND NEPHEW, INC-2015SMT00361

PATIENT
  Age: 49 Year
  Sex: Female
  Weight: 112.47 kg

DRUGS (16)
  1. TRADJENTA [Concomitant]
     Active Substance: LINAGLIPTIN
     Dosage: 5 MG, UNK
     Route: 048
  2. REGRANEX [Suspect]
     Active Substance: BECAPLERMIN
     Indication: WOUND
     Dosage: UNK, 1X/DAY
     Route: 061
     Dates: start: 20150121
  3. METFORMIN HYDROCHLORIDE ER [Concomitant]
     Active Substance: METFORMIN HYDROCHLORIDE
     Dosage: 1000 MG, 2X/DAY
  4. GLIPIZIDE ER [Concomitant]
     Active Substance: GLIPIZIDE
     Dosage: 10 MG, 2X/DAY
     Dates: start: 20150528
  5. METRONIDAZOLE. [Concomitant]
     Active Substance: METRONIDAZOLE
     Dosage: 250 MG, 4X/DAY
     Route: 048
     Dates: start: 20150510
  6. BYDUREON [Concomitant]
     Active Substance: EXENATIDE
     Dosage: UNK, 1X/WEEK
     Route: 058
  7. VITAMIN D3 [Concomitant]
     Active Substance: CHOLECALCIFEROL
     Dosage: 4000 MG, 2X/DAY
  8. ASA [Concomitant]
     Active Substance: ASPIRIN
     Dosage: 81 UNK, 1X/DAY
  9. CIPROFLOXACIN EXTENDED-RELEASE [Concomitant]
     Active Substance: CIPROFLOXACIN\CIPROFLOXACIN HYDROCHLORIDE
     Dosage: 500 MG, UNK
     Route: 048
     Dates: start: 20141104
  10. AUGMENTIN [Concomitant]
     Active Substance: AMOXICILLIN\CLAVULANATE POTASSIUM
     Dosage: 1 TABLETS, UNK
     Route: 048
     Dates: start: 20150824
  11. FARXIGA [Concomitant]
     Active Substance: DAPAGLIFLOZIN PROPANEDIOL
     Dosage: 5 MG, UNK
     Route: 048
     Dates: start: 20150223
  12. LOVASTATIN. [Concomitant]
     Active Substance: LOVASTATIN
     Dosage: 5 MG, 1X/DAY
     Route: 048
  13. JANUMET [Concomitant]
     Active Substance: METFORMIN HYDROCHLORIDE\SITAGLIPTIN PHOSPHATE
     Dosage: UNK, 2X/DAY
     Route: 048
     Dates: start: 20150224
  14. LISINOPRIL. [Concomitant]
     Active Substance: LISINOPRIL
     Dosage: 5 MG, 1X/DAY
     Route: 048
     Dates: start: 20150524
  15. CLOPIDOGREL [Concomitant]
     Active Substance: CLOPIDOGREL BISULFATE
     Dosage: 75 MG, UNK
     Route: 048
  16. GABAPENTIN. [Concomitant]
     Active Substance: GABAPENTIN
     Dosage: 300 MG, 2X/DAY
     Route: 048

REACTIONS (12)
  - Foot deformity [Unknown]
  - Abscess limb [Unknown]
  - Urticaria [Recovered/Resolved]
  - Cellulitis [Unknown]
  - Hyperkeratosis [Unknown]
  - Bone operation [Unknown]
  - Joint swelling [Unknown]
  - Wound complication [Unknown]
  - Pain in extremity [Unknown]
  - Pruritus [Recovered/Resolved]
  - Staphylococcus test [Unknown]
  - Osteomyelitis chronic [Unknown]

NARRATIVE: CASE EVENT DATE: 2015
